FAERS Safety Report 11211288 (Version 1)
Quarter: 2015Q2

REPORT INFORMATION
  Report Type: Spontaneous
  Country: US (occurrence: None)
  Receive Date: 20150619
  Receipt Date: 20150619
  Transmission Date: 20150821
  Serious: Yes (Hospitalization)
  Sender: FDA-Public Use
  Company Number: None

PATIENT
  Age: 69 Year
  Sex: Female
  Weight: 51 kg

DRUGS (9)
  1. BECLOMETHASONE [Concomitant]
     Active Substance: BECLOMETHASONE
  2. ARFORMOTEROL [Concomitant]
     Active Substance: ARFORMOTEROL
  3. PRILOSEC [Concomitant]
     Active Substance: OMEPRAZOLE MAGNESIUM
  4. SPIRIVA [Concomitant]
     Active Substance: TIOTROPIUM BROMIDE MONOHYDRATE
  5. ALBUTEROL. [Concomitant]
     Active Substance: ALBUTEROL
  6. DELTASONE [Concomitant]
     Active Substance: PREDNISONE
  7. BENADRYL [Concomitant]
     Active Substance: DIPHENHYDRAMINE HYDROCHLORIDE
  8. COMBIVENT [Concomitant]
     Active Substance: ALBUTEROL SULFATE\IPRATROPIUM BROMIDE
  9. BC [Suspect]
     Active Substance: ASPIRIN\CAFFEINE
     Indication: BACK PAIN
     Dosage: PO ?CHRONIC WITH RECENT INCREASE
     Route: 048

REACTIONS (4)
  - Overdose [None]
  - Encephalopathy [None]
  - Toxicity to various agents [None]
  - Unresponsive to stimuli [None]

NARRATIVE: CASE EVENT DATE: 20150125
